FAERS Safety Report 4746423-2 (Version None)
Quarter: 2005Q3

REPORT INFORMATION
  Report Type: 
  Country: None (occurrence: None)
  Receive Date: 20050816
  Receipt Date: 20050816
  Transmission Date: 20060218
  Serious: Yes (Hospitalization)
  Sender: FDA-Public Use
  Company Number: None

PATIENT
  Sex: Female
  Weight: 58.2 kg

DRUGS (2)
  1. GEMZAR [Suspect]
  2. CARBOPLATIN [Suspect]

REACTIONS (5)
  - DIZZINESS [None]
  - DYSPNOEA [None]
  - LUNG DISORDER [None]
  - NAUSEA [None]
  - VOMITING [None]
